FAERS Safety Report 6875740-5 (Version None)
Quarter: 2010Q2

REPORT INFORMATION
  Report Type: 
  Country: None (occurrence: None)
  Receive Date: 20100616
  Receipt Date: 20100506
  Transmission Date: 20101027
  Serious: Yes (Disabling, Other)
  Sender: FDA-Public Use
  Company Number: DSA_43120_2010

PATIENT
  Sex: Female

DRUGS (9)
  1. XENAZINE [Suspect]
     Indication: CHOREA
     Dosage: (12.5 MG TID ORAL)
     Route: 048
     Dates: start: 20100413, end: 20100430
  2. LORATADINE [Concomitant]
  3. REMERON [Concomitant]
  4. SIMVASTATIN [Concomitant]
  5. ZYPREXA [Concomitant]
  6. COLACE [Concomitant]
  7. CALCIUM WITH VITAMIN D /00944201/ [Concomitant]
  8. OXYBUTYNIN CHLORIDE [Concomitant]
  9. CLONAZEPAM [Concomitant]

REACTIONS (2)
  - DEPRESSION [None]
  - GAIT DISTURBANCE [None]
